FAERS Safety Report 19278427 (Version 2)
Quarter: 2021Q3

REPORT INFORMATION
  Report Type: Spontaneous
  Country: CA (occurrence: CA)
  Receive Date: 20210520
  Receipt Date: 20210701
  Transmission Date: 20211014
  Serious: Yes (Other)
  Sender: FDA-Public Use
  Company Number: CA-ASTELLAS-2021US017879

PATIENT
  Age: 27 Year
  Sex: Male

DRUGS (5)
  1. XOSPATA [Suspect]
     Active Substance: GILTERITINIB
     Indication: PRODUCT USED FOR UNKNOWN INDICATION
     Route: 065
     Dates: start: 20200528
  2. XOSPATA [Suspect]
     Active Substance: GILTERITINIB
     Route: 065
  3. XOSPATA [Suspect]
     Active Substance: GILTERITINIB
     Route: 065
     Dates: start: 202011
  4. XOSPATA [Suspect]
     Active Substance: GILTERITINIB
     Route: 065
  5. XOSPATA [Suspect]
     Active Substance: GILTERITINIB
     Route: 065

REACTIONS (5)
  - Hepatic enzyme increased [Recovering/Resolving]
  - Hepatic enzyme abnormal [Recovering/Resolving]
  - Dyspnoea [Recovered/Resolved]
  - Graft versus host disease in liver [Unknown]
  - Differentiation syndrome [Unknown]

NARRATIVE: CASE EVENT DATE: 202005
